FAERS Safety Report 5488646-3 (Version None)
Quarter: 2007Q4

REPORT INFORMATION
  Report Type: 
  Country: None (occurrence: None)
  Receive Date: 20071017
  Receipt Date: 20070309
  Transmission Date: 20080405
  Serious: No
  Sender: FDA-Public Use
  Company Number: A0642596A

PATIENT
  Age: 2 Year
  Sex: Female

DRUGS (1)
  1. CEFTIN [Suspect]
     Indication: OTITIS MEDIA ACUTE
     Dosage: 250MG SINGLE DOSE
     Route: 048

REACTIONS (1)
  - DYSGEUSIA [None]
